FAERS Safety Report 15580520 (Version 1)
Quarter: 2018Q4

REPORT INFORMATION
  Report Type: Report from Study
  Country: US (occurrence: US)
  Receive Date: 20181102
  Receipt Date: 20181102
  Transmission Date: 20190205
  Serious: Yes (Other)
  Sender: FDA-Public Use
  Company Number: US-GILEAD-2018-0366714

PATIENT
  Age: 62 Year
  Sex: Female

DRUGS (5)
  1. ADEMPAS [Concomitant]
     Active Substance: RIOCIGUAT
  2. XARELTO [Concomitant]
     Active Substance: RIVAROXABAN
  3. AMBRISENTAN [Suspect]
     Active Substance: AMBRISENTAN
     Indication: PRODUCT USED FOR UNKNOWN INDICATION
     Dosage: 10 MG, QD
     Route: 065
     Dates: start: 20161221
  4. UPTRAVI [Concomitant]
     Active Substance: SELEXIPAG
  5. OPSUMIT [Concomitant]
     Active Substance: MACITENTAN

REACTIONS (5)
  - Gastric disorder [Unknown]
  - Nasal congestion [Unknown]
  - Clostridium difficile colitis [Unknown]
  - Dry mouth [Unknown]
  - Anaemia [Not Recovered/Not Resolved]
